FAERS Safety Report 8885243 (Version 1)
Quarter: 2012Q4

REPORT INFORMATION
  Report Type: 
  Country: US (occurrence: US)
  Receive Date: 20121102
  Receipt Date: 20121102
  Transmission Date: 20130627
  Serious: No
  Sender: FDA-Public Use
  Company Number: US-PFIZER INC-2012268054

PATIENT
  Sex: Female

DRUGS (2)
  1. CELEBREX [Suspect]
     Indication: ARTHRITIS
     Dosage: 200 mg, 1x/day
  2. MELOXICAM [Suspect]

REACTIONS (3)
  - Drug ineffective [Unknown]
  - Hypotension [Unknown]
  - Therapeutic response unexpected [Unknown]
